FAERS Safety Report 24448573 (Version 1)
Quarter: 2024Q4

REPORT INFORMATION
  Report Type: Report from Study
  Country: BG (occurrence: BG)
  Receive Date: 20241017
  Receipt Date: 20241017
  Transmission Date: 20250115
  Serious: Yes (Other)
  Sender: UCB
  Company Number: BG-UCBSA-2024051956

PATIENT
  Sex: Female

DRUGS (1)
  1. CIMZIA [Suspect]
     Active Substance: CERTOLIZUMAB PEGOL
     Indication: Product used for unknown indication
     Dosage: UNK, EV 2 WEEKS(QOW)
     Route: 058
     Dates: start: 202409

REACTIONS (2)
  - Loss of consciousness [Unknown]
  - Nausea [Unknown]
